FAERS Safety Report 7730177-1 (Version None)
Quarter: 2011Q3

REPORT INFORMATION
  Report Type: 
  Country: None (occurrence: None)
  Receive Date: 20110906
  Receipt Date: 20110830
  Transmission Date: 20111222
  Serious: Yes (Death, Hospitalization)
  Sender: FDA-Public Use
  Company Number: PHHY2011MX77282

PATIENT
  Sex: Female

DRUGS (1)
  1. EXFORGE [Suspect]
     Indication: HYPERTENSION
     Dosage: (VALS 160 MG, AMLO 5 MG) 1 DF, DAILY
     Dates: start: 20110730, end: 20110810

REACTIONS (5)
  - RESPIRATORY ARREST [None]
  - DEPRESSION [None]
  - WEIGHT DECREASED [None]
  - PNEUMONIA [None]
  - DECREASED APPETITE [None]
